FAERS Safety Report 5693147-3 (Version None)
Quarter: 2008Q2

REPORT INFORMATION
  Report Type: 
  Country: None (occurrence: None)
  Receive Date: 20080402
  Receipt Date: 20080402
  Transmission Date: 20081010
  Serious: Yes (Other)
  Sender: FDA-Public Use
  Company Number: None

PATIENT
  Sex: Male
  Weight: 4.9896 kg

DRUGS (2)
  1. INFANT MYLICON ANTIGAS MERCK [Suspect]
     Indication: FLATULENCE
     Dosage: 0.3ML REPEATED AS NEEDED PO
     Route: 048
     Dates: start: 20080330, end: 20080331
  2. INFANT MYLICON ANTIGAS MERCK [Suspect]
     Indication: GASTROOESOPHAGEAL REFLUX DISEASE
     Dosage: 0.3ML REPEATED AS NEEDED PO
     Route: 048
     Dates: start: 20080330, end: 20080331

REACTIONS (6)
  - CONDITION AGGRAVATED [None]
  - FLATULENCE [None]
  - GASTROOESOPHAGEAL REFLUX DISEASE [None]
  - INFANTILE SPITTING UP [None]
  - PAIN [None]
  - PHARMACEUTICAL PRODUCT COMPLAINT [None]
